FAERS Safety Report 13606002 (Version 1)
Quarter: 2017Q2

REPORT INFORMATION
  Report Type: Spontaneous
  Country: US (occurrence: US)
  Receive Date: 20170602
  Receipt Date: 20170602
  Transmission Date: 20170830
  Serious: No
  Sender: FDA-Public Use
  Company Number: US-PFIZER INC-2017240759

PATIENT

DRUGS (2)
  1. ADVIL [Suspect]
     Active Substance: IBUPROFEN
     Dosage: UNK
  2. GELATIN [Suspect]
     Active Substance: GELATIN

REACTIONS (2)
  - Allergy to chemicals [Unknown]
  - Reaction to drug excipients [Unknown]
